FAERS Safety Report 16150514 (Version 1)
Quarter: 2019Q2

REPORT INFORMATION
  Report Type: Report from Study
  Country: BR (occurrence: BR)
  Receive Date: 20190403
  Receipt Date: 20190403
  Transmission Date: 20190711
  Serious: Yes (Hospitalization)
  Sender: FDA-Public Use
  Company Number: BR-JNJFOC-20190218333

PATIENT
  Sex: Female

DRUGS (1)
  1. STELARA [Suspect]
     Active Substance: USTEKINUMAB
     Indication: CROHN^S DISEASE
     Route: 058
     Dates: start: 20181217

REACTIONS (8)
  - Crohn^s disease [Not Recovered/Not Resolved]
  - Procedural complication [Unknown]
  - Malaise [Unknown]
  - Pain [Unknown]
  - Gait inability [Unknown]
  - General physical health deterioration [Unknown]
  - Asthenia [Unknown]
  - Malnutrition [Unknown]

NARRATIVE: CASE EVENT DATE: 2019
